FAERS Safety Report 8596400 (Version 2)
Quarter: 2013Q2

REPORT INFORMATION
  Report Type: Spontaneous
  Country: US (occurrence: US)
  Receive Date: 20120605
  Receipt Date: 20130617
  Transmission Date: 20140414
  Serious: Yes (Hospitalization, Disabling)
  Sender: FDA-Public Use
  Company Number: US-ASTRAZENECA-2012SE35619

PATIENT
  Age: 51 Year
  Sex: Female
  Weight: 76.2 kg

DRUGS (30)
  1. NEXIUM [Suspect]
     Indication: GASTRITIS
     Dosage: DAILY
     Route: 048
     Dates: start: 200110
  2. NEXIUM [Suspect]
     Indication: DUODENITIS
     Dosage: DAILY
     Route: 048
     Dates: start: 200110
  3. NEXIUM [Suspect]
     Indication: OESOPHAGITIS
     Dosage: DAILY
     Route: 048
     Dates: start: 200110
  4. NEXIUM [Suspect]
     Indication: GASTRITIS
     Route: 048
     Dates: start: 20011022
  5. NEXIUM [Suspect]
     Indication: DUODENITIS
     Route: 048
     Dates: start: 20011022
  6. NEXIUM [Suspect]
     Indication: OESOPHAGITIS
     Route: 048
     Dates: start: 20011022
  7. PRILOSEC [Suspect]
     Route: 048
  8. PROTONIX [Concomitant]
  9. PREVACID [Concomitant]
     Dates: start: 19980427
  10. ZANTAC [Concomitant]
  11. PEPCID [Concomitant]
  12. TAGAMET [Concomitant]
  13. ASPIRIN [Concomitant]
  14. ALPRAZOLAM [Concomitant]
     Dates: start: 19970210
  15. ALPRAZOLAM [Concomitant]
     Dates: start: 20101011
  16. EFFEXOR XR [Concomitant]
     Dates: start: 20010831
  17. ZYRTEC [Concomitant]
     Dates: start: 20010910
  18. PROPO-N/APAP [Concomitant]
     Dosage: 100-650
     Dates: start: 19970116
  19. NASONEX [Concomitant]
     Dates: start: 20010913
  20. IMITREX [Concomitant]
     Dates: start: 20010919
  21. HYDROCO/APAP [Concomitant]
     Dosage: 5-500 MG
     Dates: start: 19970616
  22. VALTREX [Concomitant]
     Dates: start: 19980427
  23. LOTRISONE [Concomitant]
     Dates: start: 19980427
  24. METRONIDAZOLE [Concomitant]
     Dates: start: 20020312
  25. DILTIAZEM [Concomitant]
     Dosage: 120MG/2
     Dates: start: 20020213
  26. SULFATRIM DS [Concomitant]
     Dosage: 800-160
     Dates: start: 20020213
  27. TEMAZEPAM [Concomitant]
     Dates: start: 20020218
  28. PREMPRO [Concomitant]
     Dosage: 0.625-2.5
     Dates: start: 20020321
  29. TRAZODONE HCL [Concomitant]
     Dates: start: 20020204
  30. ATENOLOL [Concomitant]
     Dates: start: 20021009

REACTIONS (16)
  - Foot fracture [Unknown]
  - Fibromyalgia [Unknown]
  - Ankle fracture [Unknown]
  - Lower limb fracture [Unknown]
  - Hand fracture [Unknown]
  - Panic disorder [Unknown]
  - Osteoarthritis [Unknown]
  - Impaired work ability [Unknown]
  - Tibia fracture [Unknown]
  - Fibula fracture [Unknown]
  - Cardiac disorder [Unknown]
  - Osteoporosis [Unknown]
  - Type 2 diabetes mellitus [Unknown]
  - Arthritis [Unknown]
  - Depression [Unknown]
  - Patella fracture [Unknown]
